FAERS Safety Report 7168808-X (Version None)
Quarter: 2010Q4

REPORT INFORMATION
  Report Type: 
  Country: None (occurrence: None)
  Receive Date: 20101216
  Receipt Date: 20100412
  Transmission Date: 20110411
  Serious: No
  Sender: FDA-Public Use
  Company Number: US-AMGEN-KDL388396

PATIENT

DRUGS (10)
  1. ENBREL [Suspect]
     Indication: SPONDYLOARTHROPATHY
     Dosage: 25 MG, 2 TIMES/WK
     Route: 058
     Dates: start: 20091202
  2. ENBREL [Suspect]
     Indication: PSORIATIC ARTHROPATHY
  3. METHOTREXATE [Concomitant]
     Dosage: 25 MG, QWK
     Dates: start: 20090805
  4. CELECOXIB [Concomitant]
     Dosage: 400 MG, UNK
     Dates: start: 20090820
  5. TRAMADOL [Concomitant]
     Dosage: 50 MG, TID
     Dates: start: 20090903
  6. FOLIC ACID [Concomitant]
     Dosage: 1 MG, UNK
     Dates: start: 20090805
  7. LANSOPRAZOLE [Concomitant]
     Dosage: 30 MG, UNK
  8. MULTI-VITAMINS [Concomitant]
     Dosage: UNK UNK, UNK
     Dates: start: 20090805
  9. CALCIUM [Concomitant]
     Dosage: UNK UNK, UNK
     Dates: start: 20090805
  10. FISH OIL [Concomitant]
     Dosage: UNK UNK, UNK
     Dates: start: 20090805

REACTIONS (17)
  - ABDOMINAL DISCOMFORT [None]
  - BACK PAIN [None]
  - CHEST PAIN [None]
  - DRUG INEFFECTIVE [None]
  - FEELING COLD [None]
  - HYPOAESTHESIA [None]
  - INJECTION SITE ERYTHEMA [None]
  - INJECTION SITE INFLAMMATION [None]
  - INJECTION SITE PARAESTHESIA [None]
  - INJECTION SITE PRURITUS [None]
  - INJECTION SITE URTICARIA [None]
  - JOINT SPRAIN [None]
  - JOINT SWELLING [None]
  - LOCAL SWELLING [None]
  - NECK PAIN [None]
  - PARAESTHESIA [None]
  - SLEEP DISORDER [None]
